FAERS Safety Report 25484611 (Version 1)
Quarter: 2025Q2

REPORT INFORMATION
  Report Type: Spontaneous
  Country: US (occurrence: None)
  Receive Date: 20250626
  Receipt Date: 20250626
  Transmission Date: 20250717
  Serious: Yes (Hospitalization)
  Sender: FDA-CTU
  Company Number: None

PATIENT
  Age: 72 Year
  Sex: Female
  Weight: 74.25 kg

DRUGS (6)
  1. WEGOVY [Suspect]
     Active Substance: SEMAGLUTIDE
     Indication: Weight abnormal
     Dates: start: 20250419, end: 20250607
  2. DEVICE [Concomitant]
     Active Substance: DEVICE
  3. GABAPENTIN [Concomitant]
     Active Substance: GABAPENTIN
  4. TYLENOL VIT D 5000 [Concomitant]
  5. CALCIUM [Concomitant]
     Active Substance: CALCIUM
  6. PROZAC [Concomitant]
     Active Substance: FLUOXETINE HYDROCHLORIDE

REACTIONS (3)
  - Transient global amnesia [None]
  - Migraine [None]
  - Aphasia [None]

NARRATIVE: CASE EVENT DATE: 20250420
